FAERS Safety Report 6362004-1 (Version None)
Quarter: 2009Q3

REPORT INFORMATION
  Report Type: 
  Country: None (occurrence: None)
  Receive Date: 20090918
  Receipt Date: 20090909
  Transmission Date: 20100115
  Serious: Yes (Other)
  Sender: FDA-Public Use
  Company Number: JP-AMGEN-US364697

PATIENT

DRUGS (2)
  1. ENBREL [Suspect]
     Indication: RHEUMATOID ARTHRITIS
     Dosage: UNKNOWN
  2. ENBREL [Suspect]
     Dosage: RESUMED 2 MONTHS AFTER SURGERY AT UNKNOWN DOSE

REACTIONS (1)
  - KNEE ARTHROPLASTY [None]
